FAERS Safety Report 4626222-2 (Version None)
Quarter: 2005Q2

REPORT INFORMATION
  Report Type: 
  Country: None (occurrence: None)
  Receive Date: 20050331
  Receipt Date: 20040614
  Transmission Date: 20051028
  Serious: Yes (Other)
  Sender: FDA-Public Use
  Company Number: 200412919BCC

PATIENT
  Age: 45 Year
  Sex: Male
  Weight: 79.3795 kg

DRUGS (6)
  1. ALEVE (CAPLET) [Suspect]
     Indication: BACK PAIN
     Dosage: 1100 MG, TOTAL DAILY, ORAL;  660 MG, TOTAL DAILY, ORAL
     Route: 048
     Dates: start: 20040612
  2. ALEVE (CAPLET) [Suspect]
     Indication: BACK PAIN
     Dosage: 1100 MG, TOTAL DAILY, ORAL;  660 MG, TOTAL DAILY, ORAL
     Route: 048
     Dates: start: 20040613
  3. CELEBREX [Concomitant]
  4. OXYCONTIN [Concomitant]
  5. PROTONIX [Concomitant]
  6. TRAZODONE HCL [Concomitant]

REACTIONS (3)
  - HYPERSENSITIVITY [None]
  - OROPHARYNGEAL SWELLING [None]
  - PRURITUS [None]
